FAERS Safety Report 12706203 (Version 3)
Quarter: 2021Q3

REPORT INFORMATION
  Report Type: Report from Study
  Country: US (occurrence: US)
  Receive Date: 20160901
  Receipt Date: 20210721
  Transmission Date: 20211014
  Serious: Yes (Other)
  Sender: FDA-Public Use
  Company Number: US-JAZZ-2016-US-008027

PATIENT
  Sex: Female

DRUGS (27)
  1. XYREM [Suspect]
     Active Substance: SODIUM OXYBATE
     Indication: NARCOLEPSY
     Dosage: 2.25 GRAM, BID
     Route: 048
     Dates: start: 201111, end: 201111
  2. XYREM [Suspect]
     Active Substance: SODIUM OXYBATE
     Dosage: 4.5 GRAM, BID
     Route: 048
     Dates: start: 201112
  3. VITAMIN D3 [Concomitant]
     Active Substance: CHOLECALCIFEROL
  4. ESCITALOPRAM [ESCITALOPRAM OXALATE] [Concomitant]
     Active Substance: ESCITALOPRAM OXALATE
  5. OXYCONTIN [Concomitant]
     Active Substance: OXYCODONE HYDROCHLORIDE
  6. RITALIN [Concomitant]
     Active Substance: METHYLPHENIDATE HYDROCHLORIDE
  7. MELOXICAM. [Concomitant]
     Active Substance: MELOXICAM
  8. OMEPRAZOLE. [Concomitant]
     Active Substance: OMEPRAZOLE
  9. NUVIGIL [Concomitant]
     Active Substance: ARMODAFINIL
  10. METHYLPHENIDATE [METHYLPHENIDATE HYDROCHLORIDE] [Concomitant]
     Active Substance: METHYLPHENIDATE HYDROCHLORIDE
  11. RIZATRIPTAN [RIZATRIPTAN BENZOATE] [Concomitant]
  12. XYREM [Suspect]
     Active Substance: SODIUM OXYBATE
     Dosage: DOSE ADJUSTMENTS
     Route: 048
  13. SYNTHROID [Concomitant]
     Active Substance: LEVOTHYROXINE SODIUM
  14. METFORMIN HCL [Concomitant]
     Active Substance: METFORMIN HYDROCHLORIDE
  15. LEVOTHYROXINE [LEVOTHYROXINE SODIUM] [Concomitant]
     Active Substance: LEVOTHYROXINE SODIUM
  16. REQUIP [Concomitant]
     Active Substance: ROPINIROLE HYDROCHLORIDE
  17. SAVELLA [Concomitant]
     Active Substance: MILNACIPRAN HYDROCHLORIDE
  18. SINGULAIR [Concomitant]
     Active Substance: MONTELUKAST SODIUM
  19. ACIPHEX [Concomitant]
     Active Substance: RABEPRAZOLE SODIUM
  20. IRON [Concomitant]
     Active Substance: IRON
  21. PRISTIQ EXTENDED?RELEASE [Concomitant]
     Active Substance: DESVENLAFAXINE SUCCINATE
  22. ENJUVIA [Concomitant]
     Active Substance: ESTROGENS, CONJUGATED SYNTHETIC B
  23. LYRICA [Concomitant]
     Active Substance: PREGABALIN
  24. OPANA [Concomitant]
     Active Substance: OXYMORPHONE HYDROCHLORIDE
  25. ARMOUR THYROID [Concomitant]
     Active Substance: THYROID, PORCINE
  26. BUPROPION HCL [Concomitant]
     Active Substance: BUPROPION HYDROCHLORIDE
  27. FLONASE [Concomitant]
     Active Substance: FLUTICASONE PROPIONATE

REACTIONS (2)
  - Systemic lupus erythematosus [Not Recovered/Not Resolved]
  - Arthritis [Not Recovered/Not Resolved]
